FAERS Safety Report 13751652 (Version 1)
Quarter: 2017Q3

REPORT INFORMATION
  Report Type: Spontaneous
  Country: US (occurrence: US)
  Receive Date: 20170713
  Receipt Date: 20170713
  Transmission Date: 20171127
  Serious: No
  Sender: FDA-Public Use
  Company Number: US-ASTELLAS-2017US021976

PATIENT
  Age: 84 Year
  Sex: Female

DRUGS (2)
  1. MYRBETRIQ [Suspect]
     Active Substance: MIRABEGRON
     Indication: URINARY INCONTINENCE
     Dosage: 50 MG, TWICE DAILY (ONE IN THE MORNING, AND ONE IN THE EVENING)
     Route: 065
  2. MYRBETRIQ [Suspect]
     Active Substance: MIRABEGRON
     Dosage: 100 MG, TWICE DAILY (100 MG IN THE MORNING AND 100 MG IN THE EVENING)
     Route: 065
     Dates: start: 20170531

REACTIONS (3)
  - Prescribed overdose [Unknown]
  - Drug effect incomplete [Unknown]
  - Inappropriate schedule of drug administration [Unknown]
